FAERS Safety Report 11717845 (Version 1)
Quarter: 2015Q4

REPORT INFORMATION
  Report Type: Spontaneous
  Country: US (occurrence: None)
  Receive Date: 20151109
  Receipt Date: 20151109
  Transmission Date: 20160304
  Serious: Yes (Hospitalization)
  Sender: FDA-Public Use
  Company Number: None

PATIENT
  Age: 64 Year
  Sex: Female

DRUGS (2)
  1. RIFAMPIN. [Suspect]
     Active Substance: RIFAMPIN
     Indication: LATENT TUBERCULOSIS
     Dates: start: 20140101, end: 20140304
  2. METOPROLOL [Concomitant]
     Active Substance: METOPROLOL

REACTIONS (5)
  - Liver transplant [None]
  - Acute kidney injury [None]
  - Hepatic necrosis [None]
  - Drug-induced liver injury [None]
  - Encephalopathy [None]

NARRATIVE: CASE EVENT DATE: 20140228
